FAERS Safety Report 8506788-2 (Version None)
Quarter: 2012Q3

REPORT INFORMATION
  Report Type: 
  Country: None (occurrence: None)
  Receive Date: 20120712
  Receipt Date: 20120702
  Transmission Date: 20120928
  Serious: No
  Sender: FDA-Public Use
  Company Number: US-ASTRAZENECA-2012SE45310

PATIENT
  Age: 56 Year
  Sex: Female

DRUGS (10)
  1. CRESTOR [Suspect]
     Route: 048
  2. CALCIUM [Concomitant]
  3. LISINOPRIL [Concomitant]
  4. METOPROLOL TARTRATE [Concomitant]
  5. ASPIRIN [Concomitant]
  6. DIOVAN [Concomitant]
  7. LEXAPRO [Concomitant]
  8. ANTIVERT [Concomitant]
  9. PROTONIX [Concomitant]
  10. TOPAMAX [Concomitant]

REACTIONS (3)
  - BLOOD PRESSURE ABNORMAL [None]
  - SYSTEMIC LUPUS ERYTHEMATOSUS [None]
  - BLOOD CHOLESTEROL ABNORMAL [None]
